FAERS Safety Report 7535647-7 (Version None)
Quarter: 2011Q2

REPORT INFORMATION
  Report Type: 
  Country: None (occurrence: None)
  Receive Date: 20110609
  Receipt Date: 20110525
  Transmission Date: 20111010
  Serious: Yes (Hospitalization, Other)
  Sender: FDA-Public Use
  Company Number: CO-JNJFOC-20110512572

PATIENT
  Age: 52 Year
  Sex: Female

DRUGS (7)
  1. SULFASALAZINE [Concomitant]
     Route: 065
  2. CALCIUM CARBONATE [Concomitant]
     Route: 065
  3. METHOTREXATE [Concomitant]
     Route: 065
  4. FOLIC ACID [Concomitant]
     Route: 065
  5. OMEPRAZOLE [Concomitant]
     Route: 065
  6. REMICADE [Suspect]
     Indication: RHEUMATOID ARTHRITIS
     Route: 042
     Dates: start: 20080530
  7. PREDNISOLONE [Concomitant]
     Route: 065

REACTIONS (2)
  - URINARY TRACT INFECTION [None]
  - MENINGITIS TUBERCULOUS [None]
